FAERS Safety Report 4870907-X (Version None)
Quarter: 2005Q4

REPORT INFORMATION
  Report Type: 
  Country: None (occurrence: None)
  Receive Date: 20051229
  Receipt Date: 20051221
  Transmission Date: 20060501
  Serious: Yes (Other)
  Sender: FDA-Public Use
  Company Number: 6019434

PATIENT
  Age: 49 Year
  Sex: Male

DRUGS (2)
  1. SEQUACOR BISOPROLOL [Suspect]
     Indication: HYPERTENSION
     Dosage: 2,500 MG (2,5 MG, 1 IN 1 D) ORAL
     Route: 048
     Dates: start: 20041201, end: 20051217
  2. TACHIPIRINA (PARACETAMOL) [Concomitant]

REACTIONS (2)
  - CIRCULATORY COLLAPSE [None]
  - HYPOTENSION [None]
